FAERS Safety Report 5817929-X (Version None)
Quarter: 2008Q3

REPORT INFORMATION
  Report Type: 
  Country: None (occurrence: None)
  Receive Date: 20080722
  Receipt Date: 20070713
  Transmission Date: 20090109
  Serious: No
  Sender: FDA-Public Use
  Company Number: US-BAYER-US-2007-026108

PATIENT
  Age: 47 Year
  Sex: Female
  Weight: 77 kg

DRUGS (1)
  1. MAGNEVIST [Suspect]
     Indication: NUCLEAR MAGNETIC RESONANCE IMAGING BRAIN
     Dosage: UNIT DOSE: 8 ML
     Route: 042
     Dates: start: 20070710, end: 20070710

REACTIONS (4)
  - CHEST DISCOMFORT [None]
  - DIZZINESS [None]
  - HYPOAESTHESIA ORAL [None]
  - TREMOR [None]
